FAERS Safety Report 4462350-2 (Version None)
Quarter: 2004Q3

REPORT INFORMATION
  Report Type: 
  Country: None (occurrence: None)
  Receive Date: 20040924
  Receipt Date: 20040908
  Transmission Date: 20050211
  Serious: Yes (Hospitalization)
  Sender: FDA-Public Use
  Company Number: SP00345

PATIENT
  Age: 68 Year
  Sex: Female

DRUGS (5)
  1. RIFAXIMIN (TABLETS) [Suspect]
     Indication: DIARRHOEA
     Dosage: 200 MG TID, ORAL
     Route: 048
     Dates: start: 20040801
  2. ATENOLOL [Concomitant]
  3. HYDROCHLOROTHIAZIDE [Concomitant]
  4. ASPIRIN [Concomitant]
  5. XANAX [Concomitant]

REACTIONS (1)
  - RASH [None]
